FAERS Safety Report 25450358 (Version 1)
Quarter: 2025Q2

REPORT INFORMATION
  Report Type: Report from Study
  Country: AU (occurrence: AU)
  Receive Date: 20250618
  Receipt Date: 20250618
  Transmission Date: 20250717
  Serious: Yes (Hospitalization)
  Sender: MYLAN
  Company Number: AU-MYLANLABS-2025M1050710

PATIENT
  Age: 15 Year

DRUGS (6)
  1. VANCOMYCIN [Suspect]
     Active Substance: VANCOMYCIN
     Indication: Colitis
     Dosage: 250 MILLIGRAM, QID, THERAPY COMPLETED
  2. METHYLPREDNISOLONE [Suspect]
     Active Substance: METHYLPREDNISOLONE
     Indication: Colitis
  3. AMOXICILLIN [Suspect]
     Active Substance: AMOXICILLIN
     Indication: Colitis
     Dosage: UNK, TID, ~50?MG/KG/DAY DIVIDED INTO THREE DOSES; THREE TIMES A DAY
  4. DOXYCYCLINE [Suspect]
     Active Substance: DOXYCYCLINE
     Indication: Colitis
     Dosage: 2 MILLIGRAM/KILOGRAM, BID,THERAPY COMPLETED
  5. INFLIXIMAB [Suspect]
     Active Substance: INFLIXIMAB
     Indication: Colitis
  6. METRONIDAZOLE [Suspect]
     Active Substance: METRONIDAZOLE
     Indication: Colitis
     Dosage: 5 MILLIGRAM/KILOGRAM, TID,  THERAPY COMPLETED.

REACTIONS (1)
  - Drug ineffective [Unknown]
